FAERS Safety Report 9372357 (Version 1)
Quarter: 2013Q2

REPORT INFORMATION
  Report Type: Report from Study
  Country: US (occurrence: US)
  Receive Date: 20130627
  Receipt Date: 20130627
  Transmission Date: 20140414
  Serious: Yes (Other)
  Sender: FDA-Public Use
  Company Number: US-MYLANLABS-2012S1021642

PATIENT
  Age: 32 Year
  Sex: Male
  Weight: 81.65 kg

DRUGS (11)
  1. CLOZAPINE TABLETS [Suspect]
     Indication: AGGRESSION
  2. CLONIDINE [Concomitant]
  3. CLONAZEPAM [Concomitant]
  4. HYDROXYZINE [Concomitant]
  5. SEROQUEL [Concomitant]
  6. DOCUSATE [Concomitant]
  7. LISINOPRIL [Concomitant]
  8. DEPAKOTE [Concomitant]
  9. BENZOTROPINE [Concomitant]
  10. HALOPERIDOL [Concomitant]
  11. VITAMIN D [Concomitant]

REACTIONS (1)
  - Granulocytopenia [Not Recovered/Not Resolved]
